FAERS Safety Report 13588952 (Version 1)
Quarter: 2017Q2

REPORT INFORMATION
  Report Type: Spontaneous
  Country: US (occurrence: US)
  Receive Date: 20170529
  Receipt Date: 20170529
  Transmission Date: 20170830
  Serious: Yes (Other)
  Sender: FDA-Public Use
  Company Number: US-TAIHO ONCOLOGY INC-EU-2017-00813

PATIENT
  Sex: Male
  Weight: 67.06 kg

DRUGS (1)
  1. LONSURF [Suspect]
     Active Substance: TIPIRACIL HYDROCHLORIDE\TRIFLURIDINE
     Indication: COLON CANCER
     Dosage: CYCLE 2 STARTED ON 17APR2017
     Route: 048
     Dates: start: 20170213, end: 2017

REACTIONS (10)
  - Motor dysfunction [Unknown]
  - Peripheral swelling [Unknown]
  - Diarrhoea [Not Recovered/Not Resolved]
  - Fatigue [Unknown]
  - Breast mass [Recovered/Resolved]
  - Drug ineffective [Unknown]
  - Pulmonary embolism [Unknown]
  - Hypoaesthesia [Unknown]
  - Deep vein thrombosis [Unknown]
  - Skin exfoliation [Recovering/Resolving]

NARRATIVE: CASE EVENT DATE: 2017
